FAERS Safety Report 10509385 (Version 1)
Quarter: 2014Q4

REPORT INFORMATION
  Report Type: Spontaneous
  Country: US (occurrence: US)
  Receive Date: 20141009
  Receipt Date: 20141009
  Transmission Date: 20150528
  Serious: No
  Sender: FDA-Public Use
  Company Number: US-009507513-1410USA003943

PATIENT
  Sex: Female

DRUGS (1)
  1. CORICIDIN HBP [Suspect]
     Active Substance: ACETAMINOPHEN\CHLORPHENIRAMINE MALEATE
     Indication: PRODUCT USED FOR UNKNOWN INDICATION
     Dosage: 1 DF, ONCE
     Route: 048
     Dates: start: 2014

REACTIONS (1)
  - Expired product administered [Unknown]

NARRATIVE: CASE EVENT DATE: 2014
